FAERS Safety Report 6812059-2 (Version None)
Quarter: 2010Q2

REPORT INFORMATION
  Report Type: 
  Country: None (occurrence: None)
  Receive Date: 20100628
  Receipt Date: 20100616
  Transmission Date: 20101027
  Serious: Yes (Life-Threatening, Hospitalization)
  Sender: FDA-Public Use
  Company Number: 2010AL003645

PATIENT
  Age: 34 Year
  Sex: Male

DRUGS (5)
  1. VENLAFAXINE HYDROCHLORIDE [Suspect]
     Indication: DEPRESSION
     Dosage: 75 MG; QD; PO
     Route: 048
     Dates: start: 20100602, end: 20100610
  2. OMEPRAZOLE [Concomitant]
  3. THIAMINE [Concomitant]
  4. VITAMIN B COMPLEX CAP [Concomitant]
  5. PREV MEDS [Concomitant]

REACTIONS (1)
  - OVERDOSE [None]
